FAERS Safety Report 12320900 (Version 1)
Quarter: 2016Q2

REPORT INFORMATION
  Report Type: Spontaneous
  Country: US (occurrence: US)
  Receive Date: 20160429
  Receipt Date: 20160429
  Transmission Date: 20160815
  Serious: No
  Sender: FDA-Public Use
  Company Number: US-ROCHE-1577155

PATIENT
  Age: 6 Month
  Sex: Male

DRUGS (1)
  1. VALCYTE [Suspect]
     Active Substance: VALGANCICLOVIR HYDROCHLORIDE
     Indication: CONGENITAL CYTOMEGALOVIRUS INFECTION
     Route: 048

REACTIONS (2)
  - Vomiting [Unknown]
  - Nausea [Unknown]
